FAERS Safety Report 8281525-8 (Version None)
Quarter: 2012Q2

REPORT INFORMATION
  Report Type: 
  Country: None (occurrence: None)
  Receive Date: 20120413
  Receipt Date: 20120403
  Transmission Date: 20120825
  Serious: Yes (Hospitalization, Other)
  Sender: FDA-Public Use
  Company Number: US-CELGENEUS-163-21880-11122074

PATIENT
  Sex: Female

DRUGS (5)
  1. REVLIMID [Suspect]
     Indication: MYELODYSPLASTIC SYNDROME
     Dosage: 5 MILLIGRAM
     Route: 048
     Dates: start: 20111109, end: 20111125
  2. COZAAR [Concomitant]
     Dosage: 50 MILLIGRAM
     Route: 065
  3. ALBUMIN (HUMAN) [Concomitant]
     Dosage: 12.5 MILLIGRAM
     Route: 065
  4. WARFARIN SODIUM [Concomitant]
     Dosage: 5 MILLIGRAM
     Route: 065
  5. BYSTOLIC [Concomitant]
     Dosage: 2.5 MILLIGRAM
     Route: 065

REACTIONS (8)
  - DRUG INEFFECTIVE [None]
  - HAEMATOCHEZIA [None]
  - ELECTROLYTE IMBALANCE [None]
  - DIARRHOEA [None]
  - CARDIAC FAILURE CONGESTIVE [None]
  - URINARY TRACT INFECTION [None]
  - PNEUMONIA [None]
  - DEHYDRATION [None]
